FAERS Safety Report 6070969-0 (Version None)
Quarter: 2009Q1

REPORT INFORMATION
  Report Type: 
  Country: None (occurrence: None)
  Receive Date: 20090209
  Receipt Date: 20090202
  Transmission Date: 20090719
  Serious: Yes (Other)
  Sender: FDA-Public Use
  Company Number: A0759611A

PATIENT
  Age: 72 Year
  Sex: Female

DRUGS (2)
  1. ARIXTRA [Suspect]
     Indication: THROMBOSIS PROPHYLAXIS
     Dosage: 2.5MG PER DAY
     Route: 058
     Dates: start: 20081127, end: 20081128
  2. LYRICA [Concomitant]

REACTIONS (9)
  - DRUG INEFFECTIVE [None]
  - GASTRIC HAEMORRHAGE [None]
  - GINGIVAL PAIN [None]
  - MELAENA [None]
  - MOUTH HAEMORRHAGE [None]
  - OEDEMA PERIPHERAL [None]
  - PAIN IN EXTREMITY [None]
  - POOR PERIPHERAL CIRCULATION [None]
  - WITHDRAWAL SYNDROME [None]
